FAERS Safety Report 24291603 (Version 1)
Quarter: 2024Q3

REPORT INFORMATION
  Report Type: Spontaneous
  Country: US (occurrence: None)
  Receive Date: 20240906
  Receipt Date: 20240906
  Transmission Date: 20241017
  Serious: No
  Sender: DOMPE FARMACEUTICI
  Company Number: US-FARMAPROD-202308-202309-2869

PATIENT
  Sex: Female

DRUGS (10)
  1. OXERVATE [Suspect]
     Active Substance: CENEGERMIN-BKBJ
     Indication: Neurotrophic keratopathy
     Route: 047
     Dates: start: 20230831
  2. PHENTERMINE HYDROCHLORIDE [Concomitant]
     Active Substance: PHENTERMINE HYDROCHLORIDE
  3. FISH OIL [Concomitant]
     Active Substance: FISH OIL
     Dosage: 100-160
  4. TYLENOL [Concomitant]
     Active Substance: ACETAMINOPHEN
  5. MOTRIN IB [Concomitant]
     Active Substance: IBUPROFEN
  6. BACLOFEN [Concomitant]
     Active Substance: BACLOFEN
  7. SUMATRIPTAN SUCCINATE [Concomitant]
     Active Substance: SUMATRIPTAN SUCCINATE
  8. VITAMIN D3 [Concomitant]
     Active Substance: CHOLECALCIFEROL
  9. PYRIDOXINE [Concomitant]
     Active Substance: PYRIDOXINE
  10. MULTIVITAMIN 50 PLUS [Concomitant]

REACTIONS (2)
  - Pain [Unknown]
  - Weight fluctuation [Unknown]
